FAERS Safety Report 23948985 (Version 8)
Quarter: 2024Q3

REPORT INFORMATION
  Report Type: Report from Study
  Country: CA (occurrence: CA)
  Receive Date: 20240607
  Receipt Date: 20240910
  Transmission Date: 20241017
  Serious: Yes (Hospitalization, Other)
  Sender: TAKEDA
  Company Number: CA-TAKEDA-2024TUS049046

PATIENT
  Age: 12 Year
  Sex: Male

DRUGS (51)
  1. TEDUGLUTIDE [Suspect]
     Active Substance: TEDUGLUTIDE
     Indication: Short-bowel syndrome
     Dosage: 1.9 MILLIGRAM, QD
     Route: 058
     Dates: start: 20240512
  2. TEDUGLUTIDE [Suspect]
     Active Substance: TEDUGLUTIDE
     Indication: Short-bowel syndrome
     Dosage: 1.9 MILLIGRAM, QD
     Route: 058
     Dates: start: 20240512
  3. TEDUGLUTIDE [Suspect]
     Active Substance: TEDUGLUTIDE
     Indication: Short-bowel syndrome
     Dosage: 1.9 MILLIGRAM, QD
     Route: 058
     Dates: start: 20240512
  4. TEDUGLUTIDE [Suspect]
     Active Substance: TEDUGLUTIDE
     Indication: Short-bowel syndrome
     Dosage: 1.9 MILLIGRAM, QD
     Route: 058
     Dates: start: 20240512
  5. TEDUGLUTIDE [Suspect]
     Active Substance: TEDUGLUTIDE
     Dosage: 1.9 MILLIGRAM, QD
     Route: 050
  6. TEDUGLUTIDE [Suspect]
     Active Substance: TEDUGLUTIDE
     Dosage: 1.9 MILLIGRAM, QD
     Route: 050
  7. TEDUGLUTIDE [Suspect]
     Active Substance: TEDUGLUTIDE
     Dosage: 1.9 MILLIGRAM, QD
     Route: 050
  8. TEDUGLUTIDE [Suspect]
     Active Substance: TEDUGLUTIDE
     Dosage: 1.9 MILLIGRAM, QD
     Route: 050
  9. TEDUGLUTIDE [Suspect]
     Active Substance: TEDUGLUTIDE
     Dosage: UNK UNK, QD
     Route: 058
  10. TEDUGLUTIDE [Suspect]
     Active Substance: TEDUGLUTIDE
     Dosage: UNK UNK, QD
     Route: 058
  11. TEDUGLUTIDE [Suspect]
     Active Substance: TEDUGLUTIDE
     Dosage: UNK UNK, QD
     Route: 058
  12. TEDUGLUTIDE [Suspect]
     Active Substance: TEDUGLUTIDE
     Dosage: UNK UNK, QD
     Route: 058
  13. TEDUGLUTIDE [Suspect]
     Active Substance: TEDUGLUTIDE
     Dosage: 1.9 MILLIGRAM, QD
     Route: 050
  14. TEDUGLUTIDE [Suspect]
     Active Substance: TEDUGLUTIDE
     Dosage: 1.9 MILLIGRAM, QD
     Route: 050
  15. TEDUGLUTIDE [Suspect]
     Active Substance: TEDUGLUTIDE
     Dosage: 1.9 MILLIGRAM, QD
     Route: 050
  16. TEDUGLUTIDE [Suspect]
     Active Substance: TEDUGLUTIDE
     Dosage: 1.9 MILLIGRAM, QD
     Route: 050
  17. TEDUGLUTIDE [Suspect]
     Active Substance: TEDUGLUTIDE
     Dosage: 2 MILLIGRAM, QD
     Route: 065
  18. TEDUGLUTIDE [Suspect]
     Active Substance: TEDUGLUTIDE
     Dosage: 2 MILLIGRAM, QD
     Route: 065
  19. TEDUGLUTIDE [Suspect]
     Active Substance: TEDUGLUTIDE
     Dosage: 2 MILLIGRAM, QD
     Route: 065
  20. TEDUGLUTIDE [Suspect]
     Active Substance: TEDUGLUTIDE
     Dosage: 2 MILLIGRAM, QD
     Route: 065
  21. TEDUGLUTIDE [Suspect]
     Active Substance: TEDUGLUTIDE
     Dosage: 1.9 MILLIGRAM, QD
     Route: 058
  22. TEDUGLUTIDE [Suspect]
     Active Substance: TEDUGLUTIDE
     Dosage: 1.9 MILLIGRAM, QD
     Route: 058
  23. TEDUGLUTIDE [Suspect]
     Active Substance: TEDUGLUTIDE
     Dosage: 1.9 MILLIGRAM, QD
     Route: 058
  24. TEDUGLUTIDE [Suspect]
     Active Substance: TEDUGLUTIDE
     Dosage: 1.9 MILLIGRAM, QD
     Route: 058
  25. TEDUGLUTIDE [Suspect]
     Active Substance: TEDUGLUTIDE
     Dosage: 2 MILLIGRAM, QD
     Route: 050
  26. TEDUGLUTIDE [Suspect]
     Active Substance: TEDUGLUTIDE
     Dosage: 2 MILLIGRAM, QD
     Route: 050
  27. TEDUGLUTIDE [Suspect]
     Active Substance: TEDUGLUTIDE
     Dosage: 2 MILLIGRAM, QD
     Route: 050
  28. TEDUGLUTIDE [Suspect]
     Active Substance: TEDUGLUTIDE
     Dosage: 2 MILLIGRAM, QD
     Route: 050
  29. TEDUGLUTIDE [Suspect]
     Active Substance: TEDUGLUTIDE
     Dosage: UNK UNK, QD
     Route: 058
  30. TEDUGLUTIDE [Suspect]
     Active Substance: TEDUGLUTIDE
     Dosage: UNK UNK, QD
     Route: 058
  31. TEDUGLUTIDE [Suspect]
     Active Substance: TEDUGLUTIDE
     Dosage: UNK UNK, QD
     Route: 058
  32. TEDUGLUTIDE [Suspect]
     Active Substance: TEDUGLUTIDE
     Dosage: UNK UNK, QD
     Route: 058
  33. TEDUGLUTIDE [Suspect]
     Active Substance: TEDUGLUTIDE
     Dosage: 2 MILLIGRAM, QD
     Route: 058
  34. TEDUGLUTIDE [Suspect]
     Active Substance: TEDUGLUTIDE
     Dosage: 2 MILLIGRAM, QD
     Route: 058
  35. TEDUGLUTIDE [Suspect]
     Active Substance: TEDUGLUTIDE
     Dosage: 2 MILLIGRAM, QD
     Route: 058
  36. TEDUGLUTIDE [Suspect]
     Active Substance: TEDUGLUTIDE
     Dosage: 2 MILLIGRAM, QD
     Route: 058
  37. AMOXICILLIN\CLAVULANIC ACID [Suspect]
     Active Substance: AMOXICILLIN\CLAVULANIC ACID
     Indication: Product used for unknown indication
     Dosage: UNK
     Route: 065
     Dates: start: 20240523
  38. IMODIUM [Suspect]
     Active Substance: LOPERAMIDE HYDROCHLORIDE
     Indication: Product used for unknown indication
     Dosage: UNK
     Route: 065
  39. TPN [Concomitant]
     Active Substance: AMINO ACIDS\DEXTROSE\ELECTROLYTES NOS\SOYBEAN OIL
     Dosage: UNK
     Route: 065
     Dates: start: 201902
  40. TPN [Concomitant]
     Active Substance: AMINO ACIDS\DEXTROSE\ELECTROLYTES NOS\SOYBEAN OIL
     Dosage: 1500 MILLILITER, 5/WEEK
     Route: 065
     Dates: start: 20230607
  41. TPN [Concomitant]
     Active Substance: AMINO ACIDS\DEXTROSE\ELECTROLYTES NOS\SOYBEAN OIL
     Dosage: 1500 MILLILITER, 5/WEEK
     Route: 065
     Dates: start: 20240717
  42. TPN [Concomitant]
     Active Substance: AMINO ACIDS\DEXTROSE\ELECTROLYTES NOS\SOYBEAN OIL
     Dosage: 1500 MILLILITER
     Route: 065
     Dates: start: 20240804
  43. TPN [Concomitant]
     Active Substance: AMINO ACIDS\DEXTROSE\ELECTROLYTES NOS\SOYBEAN OIL
     Dosage: 1500 MILLILITER, 4/WEEK
     Route: 065
     Dates: start: 20240905
  44. DIPHENOXYLATE [Concomitant]
     Active Substance: DIPHENOXYLATE
     Dosage: UNK
     Route: 065
  45. CANASA [Concomitant]
     Active Substance: MESALAMINE
     Dosage: UNK
     Route: 065
  46. VEDOLIZUMAB [Concomitant]
     Active Substance: VEDOLIZUMAB
     Dosage: UNK
     Route: 050
  47. LOPERAMIDE [Concomitant]
     Active Substance: LOPERAMIDE
     Dosage: UNK
     Route: 065
     Dates: start: 20240509
  48. FERROUS FUMARATE [Concomitant]
     Active Substance: FERROUS FUMARATE
     Dosage: UNK
     Route: 065
  49. CALCIUM [Concomitant]
     Active Substance: CALCIUM
     Dosage: UNK
     Route: 065
  50. METHYLCOBALAMIN [Concomitant]
     Active Substance: METHYLCOBALAMIN
     Dosage: UNK
     Route: 065
  51. EMLA [Concomitant]
     Active Substance: LIDOCAINE\PRILOCAINE
     Dosage: UNK
     Route: 065

REACTIONS (27)
  - Somnolence [Recovering/Resolving]
  - Pyrexia [Recovering/Resolving]
  - Heat stroke [Not Recovered/Not Resolved]
  - Infection [Unknown]
  - Vomiting [Recovering/Resolving]
  - Croup infectious [Recovering/Resolving]
  - Diarrhoea [Unknown]
  - Weight increased [Unknown]
  - Incorrect route of product administration [Recovered/Resolved]
  - Injection site mass [Recovered/Resolved]
  - Frequent bowel movements [Recovered/Resolved]
  - Skin exfoliation [Unknown]
  - Tongue disorder [Unknown]
  - Erythema [Not Recovered/Not Resolved]
  - Injection site erythema [Recovered/Resolved]
  - Injection site pain [Recovered/Resolved]
  - Nasopharyngitis [Recovering/Resolving]
  - Abnormal faeces [Unknown]
  - Pain in extremity [Not Recovered/Not Resolved]
  - Paraesthesia [Not Recovered/Not Resolved]
  - Musculoskeletal pain [Not Recovered/Not Resolved]
  - Tight hamstring syndrome [Unknown]
  - Medial tibial stress syndrome [Unknown]
  - Cold urticaria [Unknown]
  - Rash macular [Not Recovered/Not Resolved]
  - Cough [Unknown]
  - Skin infection [Unknown]

NARRATIVE: CASE EVENT DATE: 20240513
